FAERS Safety Report 5156849-3 (Version None)
Quarter: 2006Q4

REPORT INFORMATION
  Report Type: 
  Country: None (occurrence: None)
  Receive Date: 20061115
  Receipt Date: 20061102
  Transmission Date: 20070319
  Serious: Yes (Hospitalization)
  Sender: FDA-Public Use
  Company Number: 2006127499

PATIENT
  Age: 2 Year
  Sex: Female

DRUGS (3)
  1. GENOTROPIN [Suspect]
     Indication: HYPOPITUITARISM
     Dosage: 0.6 MG (12 MG, 1 IN 1D), SUBCUTANEOUS
     Route: 058
     Dates: start: 20040618
  2. TEGRETOL [Concomitant]
  3. DECAPEPTYL (GONADORELIN) [Concomitant]

REACTIONS (2)
  - NEOPLASM RECURRENCE [None]
  - OPTIC TRACT GLIOMA [None]
